FAERS Safety Report 25681284 (Version 4)
Quarter: 2025Q4

REPORT INFORMATION
  Report Type: Spontaneous
  Country: EG (occurrence: EG)
  Receive Date: 20250814
  Receipt Date: 20251013
  Transmission Date: 20260117
  Serious: Yes (Life-Threatening, Hospitalization)
  Sender: NOVO NORDISK
  Company Number: EG-NOVOPROD-1498122

PATIENT
  Sex: Male

DRUGS (6)
  1. NOVORAPID [Suspect]
     Active Substance: INSULIN ASPART
     Indication: Type 1 diabetes mellitus
     Dosage: (WITH MEALS) ARE 7U/7U/6U OR 5U (WITH DINNER)
     Route: 058
  2. NOVORAPID [Suspect]
     Active Substance: INSULIN ASPART
     Dosage: 3 IU
     Route: 058
  3. NOVORAPID [Suspect]
     Active Substance: INSULIN ASPART
     Dosage: 17 IU, QD ((6U/6U/5U) (WITH MEALS ) (DOSE IN HOSPITAL - INSIDE NORMAL ROOM)
     Route: 058
  4. TOUJEO [Suspect]
     Active Substance: INSULIN GLARGINE
     Indication: Type 1 diabetes mellitus
     Dosage: 13 IU, QD
     Route: 058
  5. TOUJEO [Suspect]
     Active Substance: INSULIN GLARGINE
     Dosage: 11IU (DOSE IN HOSPITAL - INSIDE NORMAL ROOM)
     Route: 058
  6. VIDROP [Concomitant]
     Indication: Vitamin supplementation
     Dosage: ONCE DAILY
     Route: 048
     Dates: end: 202505

REACTIONS (6)
  - Diabetic coma [Unknown]
  - Device issue [Unknown]
  - Device delivery system issue [Unknown]
  - Incorrect dose administered by device [Unknown]
  - Product storage error [Unknown]
  - Multiple use of single-use product [Unknown]
